FAERS Safety Report 4777450-7 (Version None)
Quarter: 2005Q3

REPORT INFORMATION
  Report Type: 
  Country: None (occurrence: None)
  Receive Date: 20050915
  Receipt Date: 20050902
  Transmission Date: 20060218
  Serious: Yes (Hospitalization, Other)
  Sender: FDA-Public Use
  Company Number: 200503IM000069

PATIENT
  Age: 77 Year
  Sex: Male
  Weight: 99.7913 kg

DRUGS (5)
  1. ACTIMMUNE [Suspect]
     Indication: LUNG DISORDER
     Dosage: 200 MG UG, TIW, SUBCUTANEOUS
     Route: 058
     Dates: start: 20030301, end: 20050201
  2. BENICAR [Concomitant]
  3. CRESTOR [Concomitant]
  4. NEXIUM [Concomitant]
  5. PREDNISONE [Concomitant]

REACTIONS (2)
  - DYSPNOEA [None]
  - HEPATIC NEOPLASM MALIGNANT RESECTABLE [None]
